FAERS Safety Report 24323875 (Version 2)
Quarter: 2024Q4

REPORT INFORMATION
  Report Type: Spontaneous
  Country: US (occurrence: US)
  Receive Date: 20240916
  Receipt Date: 20241015
  Transmission Date: 20250114
  Serious: No
  Sender: BRISTOL-MYERS SQUIBB COMPANY
  Company Number: US-BRISTOL-MYERS SQUIBB COMPANY-2024-144881

PATIENT
  Age: 26 Year
  Sex: Male

DRUGS (2)
  1. ZEPOSIA [Suspect]
     Active Substance: OZANIMOD HYDROCHLORIDE
     Indication: Colitis ulcerative
     Route: 048
     Dates: start: 202404
  2. ZEPOSIA [Suspect]
     Active Substance: OZANIMOD HYDROCHLORIDE
     Route: 048
     Dates: start: 202404

REACTIONS (7)
  - Product dose omission issue [Unknown]
  - Diarrhoea [Unknown]
  - Memory impairment [Unknown]
  - Visual impairment [Unknown]
  - Fatigue [Unknown]
  - Decreased activity [Unknown]
  - Disturbance in attention [Unknown]
